FAERS Safety Report 13986545 (Version 2)
Quarter: 2018Q2

REPORT INFORMATION
  Report Type: Spontaneous
  Country: FR (occurrence: FR)
  Receive Date: 20170919
  Receipt Date: 20180405
  Transmission Date: 20180711
  Serious: Yes (Other)
  Sender: FDA-Public Use
  Company Number: FR-MERCK KGAA-2026774

PATIENT
  Age: 64 Year
  Sex: Female
  Weight: 96 kg

DRUGS (1)
  1. NOVOTHYROX [Suspect]
     Active Substance: LEVOTHYROXINE SODIUM
     Indication: POST PROCEDURAL HYPOTHYROIDISM
     Route: 048

REACTIONS (5)
  - Fatigue [Unknown]
  - Balance disorder [Unknown]
  - Product formulation issue [Unknown]
  - Vertigo [Unknown]
  - Weight increased [Unknown]

NARRATIVE: CASE EVENT DATE: 201703
